FAERS Safety Report 19707095 (Version 3)
Quarter: 2021Q4

REPORT INFORMATION
  Report Type: Report from Study
  Country: DE (occurrence: DE)
  Receive Date: 20210817
  Receipt Date: 20211118
  Transmission Date: 20220303
  Serious: Yes (Other)
  Sender: FDA-Public Use
  Company Number: DE-002147023-PHHY2019DE091441

PATIENT
  Sex: Female

DRUGS (13)
  1. LETROZOLE [Suspect]
     Active Substance: LETROZOLE
     Indication: Breast cancer metastatic
     Dosage: (2.5 MG, (28 PROBABLY MEANT DAYS))/START:26-DEC-2018
     Route: 048
  2. KISQALI [Suspect]
     Active Substance: RIBOCICLIB
     Indication: Breast cancer metastatic
     Dosage: 600 MILLIGRAM (21 DAYS INTAKE, 7 DAYS PAUSE))/27-DEC-2018
     Route: 048
     Dates: end: 20190102
  3. KISQALI [Suspect]
     Active Substance: RIBOCICLIB
     Dosage: (600 MG (DAILY DOSE), 21 DAYS INTAKE, THAN 7 DAYS PAUSE)/15-JAN-2019
     Route: 048
     Dates: end: 20190203
  4. KISQALI [Suspect]
     Active Substance: RIBOCICLIB
     Dosage: (600 MG, QD (21 DAYS INTAKE, THEN 7 DAYS PAUSE))/06-FEB-2019
     Route: 048
     Dates: end: 20190305
  5. KISQALI [Suspect]
     Active Substance: RIBOCICLIB
     Dosage: 600 MG, QD (21 DAYS INTAKE, THEN 7 DAYS PAUSE))/08-MAR-2019
     Route: 048
     Dates: end: 20191009
  6. KISQALI [Suspect]
     Active Substance: RIBOCICLIB
     Dosage: (400 MG, QD (21 DAYS INTAKE, THEN 7 DAYS PAUSE)/10-OCT-2019
     Route: 048
     Dates: end: 20191106
  7. KISQALI [Suspect]
     Active Substance: RIBOCICLIB
     Dosage: (600 MG, QD (21 DAYS INTAKE, THEN 7 DAYS PAUSE)/07-NOV-2019
     Route: 065
  8. KISQALI [Suspect]
     Active Substance: RIBOCICLIB
     Dosage: (600 MG, QD (21 DAYS INTAKE, THEN 7 DAYS PAUSE)/25-OCT-2019
     Route: 065
     Dates: end: 20201201
  9. KISQALI [Suspect]
     Active Substance: RIBOCICLIB
     Dosage: (400 MG, QD (21 DAYS INTAKE, THEN 7 DAYS PAUSE)/10-OCT-2019
     Route: 065
     Dates: end: 20191024
  10. KISQALI [Suspect]
     Active Substance: RIBOCICLIB
     Dosage: (600 MG (21 DAYS INTAKE, 7 DAYS PAUSE/27-DEC-2018
     Route: 065
     Dates: end: 20190102
  11. KISQALI [Suspect]
     Active Substance: RIBOCICLIB
     Dosage: (600 MG, QD (21 DAYS INTAKE, THEN 7 DAYS PAUSE)/12-JAN-2021
     Route: 065
     Dates: end: 20210208
  12. KISQALI [Suspect]
     Active Substance: RIBOCICLIB
     Dosage: (600 MG, QD (21 DAYS INTAKE, THEN 7 DAYS PAUSE)/09-FEB-2021
     Route: 065
  13. XGEVA [Concomitant]
     Active Substance: DENOSUMAB
     Indication: Product used for unknown indication
     Dosage: START DATE: 22-JUL-2019
     Route: 065

REACTIONS (12)
  - Polyneuropathy [Unknown]
  - Lymphopenia [Recovering/Resolving]
  - Leukopenia [Not Recovered/Not Resolved]
  - Neutropenia [Recovering/Resolving]
  - Urinary tract infection [Recovered/Resolved]
  - Alanine aminotransferase increased [Recovered/Resolved]
  - Nasopharyngitis [Recovered/Resolved]
  - Osteoarthritis [Not Recovered/Not Resolved]
  - Gamma-glutamyltransferase increased [Recovering/Resolving]
  - Pruritus [Not Recovered/Not Resolved]
  - Alopecia [Not Recovered/Not Resolved]
  - Alanine aminotransferase increased [Recovered/Resolved]

NARRATIVE: CASE EVENT DATE: 20190115
